FAERS Safety Report 13342467 (Version 1)
Quarter: 2017Q1

REPORT INFORMATION
  Report Type: Spontaneous
  Country: US (occurrence: US)
  Receive Date: 20170316
  Receipt Date: 20170316
  Transmission Date: 20170428
  Serious: Yes (Hospitalization, Congenital Anomaly, Other)
  Sender: FDA-Public Use
  Company Number: US-UCBSA-2017009202

PATIENT
  Age: 0 Day
  Sex: Male

DRUGS (5)
  1. TRILEPTAL [Concomitant]
     Active Substance: OXCARBAZEPINE
     Indication: SEIZURE
     Route: 064
  2. GENOTROPIN [Suspect]
     Active Substance: SOMATROPIN
     Indication: PRODUCT USED FOR UNKNOWN INDICATION
     Dosage: 0.21 MG/KG, WEEKLY (QW)
     Route: 058
  3. GENOTROPIN [Suspect]
     Active Substance: SOMATROPIN
     Dosage: HIGHER DOSE 0.4 MG
  4. KEPPRA [Suspect]
     Active Substance: LEVETIRACETAM
     Indication: SEIZURE
     Dosage: UNKNOWN DOSE
     Route: 064
     Dates: end: 20071107
  5. KEPPRA [Suspect]
     Active Substance: LEVETIRACETAM
     Dosage: UNKNOWN DOSE

REACTIONS (19)
  - Electrocardiogram abnormal [Unknown]
  - Foetal exposure during pregnancy [Unknown]
  - Sleep apnoea syndrome [Unknown]
  - Myopia [Unknown]
  - Cleft palate [Unknown]
  - Vomiting [Unknown]
  - Tooth development disorder [Unknown]
  - Body height below normal [Unknown]
  - Unevaluable event [Unknown]
  - Deafness [Unknown]
  - Diarrhoea [Unknown]
  - Speech disorder [Unknown]
  - Hydronephrosis [Unknown]
  - Failure to thrive [Unknown]
  - Developmental delay [Unknown]
  - Low birth weight baby [Unknown]
  - Arnold-Chiari malformation [Unknown]
  - Petit mal epilepsy [Unknown]
  - Cleft lip [Unknown]

NARRATIVE: CASE EVENT DATE: 20071107
